FAERS Safety Report 4596185-7 (Version None)
Quarter: 2005Q1

REPORT INFORMATION
  Report Type: 
  Country: None (occurrence: None)
  Receive Date: 20050225
  Receipt Date: 20050216
  Transmission Date: 20050727
  Serious: Yes (Hospitalization, Other)
  Sender: FDA-Public Use
  Company Number: HQWYE467222FEB05

PATIENT
  Age: 12 Year
  Sex: Female
  Weight: 40.86 kg

DRUGS (3)
  1. ADVIL [Suspect]
     Indication: HEADACHE
     Dosage: ONE TABLET AS NEEDED, ORAL
     Route: 048
     Dates: start: 20041020
  2. FLONASE [Concomitant]
  3. ZYRTEC [Concomitant]

REACTIONS (1)
  - TOXIC SHOCK SYNDROME [None]
